FAERS Safety Report 12963744 (Version 1)
Quarter: 2016Q4

REPORT INFORMATION
  Report Type: Spontaneous
  Country: AU (occurrence: AU)
  Receive Date: 20161122
  Receipt Date: 20161122
  Transmission Date: 20170207
  Serious: Yes (Hospitalization, Other)
  Sender: FDA-Public Use
  Company Number: AU-ORION CORPORATION ORION PHARMA-TREX2016-2337

PATIENT
  Age: 61 Year
  Sex: Female

DRUGS (4)
  1. TRIMETHOPRIM-SULFAMETHOXAZOLE [Interacting]
     Active Substance: SULFAMETHOXAZOLE\TRIMETHOPRIM
     Route: 065
  2. MYSTECLIN [Concomitant]
     Active Substance: TETRACYCLINE
     Route: 065
  3. METHOTREXATE. [Suspect]
     Active Substance: METHOTREXATE
     Indication: RHEUMATOID ARTHRITIS
     Dosage: IN DIVIDED DOSES
     Route: 065
  4. DICLOFENAC [Concomitant]
     Active Substance: DICLOFENAC
     Route: 065

REACTIONS (8)
  - Pancytopenia [Recovered/Resolved]
  - Pseudomonas test positive [Unknown]
  - Diarrhoea [Unknown]
  - Epistaxis [Unknown]
  - Drug interaction [Unknown]
  - Bone marrow failure [Unknown]
  - Mouth ulceration [Unknown]
  - Nasal ulcer [Unknown]
